FAERS Safety Report 6580954-8 (Version None)
Quarter: 2010Q1

REPORT INFORMATION
  Report Type: 
  Country: None (occurrence: None)
  Receive Date: 20100215
  Receipt Date: 20100210
  Transmission Date: 20100710
  Serious: Yes (Hospitalization)
  Sender: FDA-Public Use
  Company Number: US-BRISTOL-MYERS SQUIBB COMPANY-14800320

PATIENT
  Age: 59 Year
  Sex: Female
  Weight: 76 kg

DRUGS (6)
  1. ERBITUX [Suspect]
     Indication: RECTAL CANCER
     Dosage: START DATE WAS 31-AUG-2009;468 MG OF WEEK; INTERRUPTED ON 21SEP09
     Dates: start: 20090921
  2. FLUOROURACIL [Suspect]
     Indication: RECTAL CANCER
     Dosage: INITIAL DOSE WAS ON 31-AUG-2009; 2940 MG; INTERRUPTED ON 21SEP09
     Dates: start: 20090921
  3. RADIATION THERAPY [Suspect]
     Indication: RECTAL CANCER
  4. IMODIUM [Concomitant]
     Indication: DIARRHOEA
     Route: 048
     Dates: start: 20090918, end: 20090928
  5. CLEOCIN [Concomitant]
     Indication: RASH
     Route: 061
     Dates: start: 20090921
  6. CALCIUM + VITAMIN D [Concomitant]

REACTIONS (1)
  - ATRIAL TACHYCARDIA [None]
